FAERS Safety Report 22206072 (Version 1)
Quarter: 2023Q2

REPORT INFORMATION
  Report Type: Spontaneous
  Country: TT (occurrence: TT)
  Receive Date: 20230413
  Receipt Date: 20230413
  Transmission Date: 20230721
  Serious: Yes (Hospitalization, Other)
  Sender: FDA-Public Use
  Company Number: TT-BAYER-2022A039252

PATIENT
  Age: 67 Year
  Sex: Male

DRUGS (1)
  1. XARELTO [Suspect]
     Active Substance: RIVAROXABAN
     Indication: Atrial fibrillation
     Dosage: 20 MG, QD
     Route: 048

REACTIONS (4)
  - Cerebral infarction [Unknown]
  - Asthenia [Unknown]
  - Dysarthria [Unknown]
  - Atrial thrombosis [Unknown]

NARRATIVE: CASE EVENT DATE: 20220301
